FAERS Safety Report 7487472-3 (Version None)
Quarter: 2011Q1

REPORT INFORMATION
  Report Type: 
  Country: None (occurrence: None)
  Receive Date: 20110309
  Receipt Date: 20101124
  Transmission Date: 20110831
  Serious: No
  Sender: FDA-Public Use
  Company Number: 2010SP062114

PATIENT
  Age: 55 Year
  Sex: Female

DRUGS (2)
  1. SAPHRIS [Suspect]
     Indication: ATTENTION DEFICIT/HYPERACTIVITY DISORDER
     Dosage: 5 MG;HS;SL
     Route: 060
     Dates: start: 20101113, end: 20101113
  2. SAPHRIS [Suspect]
     Indication: MOOD SWINGS
     Dosage: 5 MG;HS;SL
     Route: 060
     Dates: start: 20101113, end: 20101113

REACTIONS (5)
  - HEADACHE [None]
  - INSOMNIA [None]
  - HICCUPS [None]
  - GAIT DISTURBANCE [None]
  - RESTLESS LEGS SYNDROME [None]
